FAERS Safety Report 21904049 (Version 1)
Quarter: 2023Q1

REPORT INFORMATION
  Report Type: Spontaneous
  Country: CN (occurrence: CN)
  Receive Date: 20230124
  Receipt Date: 20230124
  Transmission Date: 20230418
  Serious: Yes (Other)
  Sender: FDA-Public Use
  Company Number: CN-PFIZER INC-PV202300012491

PATIENT
  Age: 36 Year
  Sex: Female
  Weight: 58 kg

DRUGS (5)
  1. IDARUBICIN HYDROCHLORIDE [Suspect]
     Active Substance: IDARUBICIN HYDROCHLORIDE
     Indication: Acute leukaemia
     Dosage: 50 MG, FREQUENCY: 2 TIMES/3 DAYS
     Route: 041
     Dates: start: 20230116, end: 20230118
  2. CYTARABINE [Suspect]
     Active Substance: CYTARABINE
     Indication: Acute leukaemia
     Dosage: 1.5 G, 1X/DAY
     Route: 041
     Dates: start: 20230115, end: 20230115
  3. SODIUM CHLORIDE [Concomitant]
     Active Substance: SODIUM CHLORIDE
     Indication: Vehicle solution use
     Dosage: 100 ML, FREQUENCY: 2 TIMES/3 DAYS
     Route: 041
     Dates: start: 20230115
  4. SODIUM CHLORIDE [Concomitant]
     Active Substance: SODIUM CHLORIDE
     Dosage: 100 ML, FREQUENCY: 2 TIMES/3 DAYS
     Route: 041
     Dates: start: 20230116, end: 20230118
  5. IDARUBICIN HYDROCHLORIDE [Concomitant]
     Active Substance: IDARUBICIN HYDROCHLORIDE
     Indication: Vehicle solution use
     Dosage: 250 ML, 1X/DAY
     Route: 041
     Dates: start: 20230115, end: 20230115

REACTIONS (4)
  - White blood cell count decreased [Unknown]
  - Neutrophil count decreased [Unknown]
  - Platelet count decreased [Unknown]
  - Haemoglobin decreased [Unknown]

NARRATIVE: CASE EVENT DATE: 20230118
